FAERS Safety Report 9230437 (Version 2)
Quarter: 2013Q2

REPORT INFORMATION
  Report Type: Spontaneous
  Country: US (occurrence: US)
  Receive Date: 20130415
  Receipt Date: 20130516
  Transmission Date: 20140414
  Serious: No
  Sender: FDA-Public Use
  Company Number: US-009507513-1304USA003701

PATIENT
  Sex: Female

DRUGS (1)
  1. AZASITE [Suspect]
     Indication: CATARACT OPERATION
     Dosage: 1 DROP IN EACH EYE ONCE A DAY FOR 30 DAYS
     Route: 031
     Dates: start: 20130320

REACTIONS (3)
  - Inappropriate schedule of drug administration [Unknown]
  - Incorrect drug administration duration [Unknown]
  - No adverse event [Unknown]
